FAERS Safety Report 6720011-0 (Version None)
Quarter: 2010Q2

REPORT INFORMATION
  Report Type: 
  Country: None (occurrence: None)
  Receive Date: 20100511
  Receipt Date: 20100504
  Transmission Date: 20101027
  Serious: Yes (Other)
  Sender: FDA-Public Use
  Company Number: BR-TEVA-233678USA

PATIENT
  Age: 34 Year
  Sex: Male

DRUGS (2)
  1. PIMOZIDE TABLETS [Suspect]
     Indication: ANXIETY
     Route: 048
     Dates: start: 20090703
  2. PIMOZIDE TABLETS [Suspect]
     Indication: PHOBIA

REACTIONS (4)
  - PYREXIA [None]
  - SEDATION [None]
  - SOMNOLENCE [None]
  - WEIGHT INCREASED [None]
